FAERS Safety Report 25987328 (Version 1)
Quarter: 2025Q4

REPORT INFORMATION
  Report Type: Spontaneous
  Country: US (occurrence: US)
  Receive Date: 20251103
  Receipt Date: 20251103
  Transmission Date: 20260118
  Serious: Yes (Other)
  Sender: ALKEM
  Company Number: None

PATIENT
  Age: 38 Year
  Sex: Female

DRUGS (4)
  1. IBUPROFEN [Suspect]
     Active Substance: IBUPROFEN
     Indication: Product used for unknown indication
     Dosage: UNK
     Route: 065
  2. ASPIRIN [Suspect]
     Active Substance: ASPIRIN
     Indication: Product used for unknown indication
     Dosage: 40.5 MILLIGRAM, (60 MIN OBSERVATION)
     Route: 065
  3. ASPIRIN [Suspect]
     Active Substance: ASPIRIN
     Dosage: 40.5 MILLIGRAM, (120 MIN OBSERVATION)
     Route: 065
  4. ASPIRIN [Suspect]
     Active Substance: ASPIRIN
     Dosage: 81 MILLIGRAM, HS, (NIGHTLY)
     Route: 065

REACTIONS (8)
  - Angioedema [Recovered/Resolved]
  - Drug hypersensitivity [Recovered/Resolved]
  - Dyspnoea [Unknown]
  - Pharyngeal swelling [Unknown]
  - Pre-eclampsia [Unknown]
  - Lacrimation increased [Recovered/Resolved]
  - Throat irritation [Recovered/Resolved]
  - Exposure during pregnancy [Unknown]
